FAERS Safety Report 4767322-6 (Version None)
Quarter: 2005Q3

REPORT INFORMATION
  Report Type: 
  Country: None (occurrence: None)
  Receive Date: 20050913
  Receipt Date: 20050905
  Transmission Date: 20060218
  Serious: Yes (Other)
  Sender: FDA-Public Use
  Company Number: CN-GLAXOSMITHKLINE-B0393199A

PATIENT
  Age: 30 Year
  Sex: Male

DRUGS (1)
  1. VENTOLIN [Suspect]
     Indication: DRUG USE FOR UNKNOWN INDICATION
     Dates: start: 20050904

REACTIONS (5)
  - CONVULSION [None]
  - CYANOSIS [None]
  - HYPERSENSITIVITY [None]
  - TACHYCARDIA [None]
  - WHEEZING [None]
